FAERS Safety Report 11253643 (Version 1)
Quarter: 2015Q3

REPORT INFORMATION
  Report Type: Spontaneous
  Country: JP (occurrence: JP)
  Receive Date: 20150709
  Receipt Date: 20150709
  Transmission Date: 20151125
  Serious: Yes (Death)
  Sender: FDA-Public Use
  Company Number: JP-MALLINCKRODT-T201503338

PATIENT
  Age: 55 Year
  Sex: Male
  Weight: 58 kg

DRUGS (14)
  1. METHADONE [Suspect]
     Active Substance: METHADONE HYDROCHLORIDE
     Dosage: 10 MG (30 MG DAILY DOSE)
     Route: 048
     Dates: start: 20141111, end: 20150221
  2. ETIZOLAM [Concomitant]
     Active Substance: ETIZOLAM
     Dosage: 1 MG
     Route: 048
     Dates: end: 20150220
  3. METHADONE [Suspect]
     Active Substance: METHADONE HYDROCHLORIDE
     Indication: CANCER PAIN
     Dosage: 5 MG (15 MG DAILY DOSE)
     Route: 048
     Dates: start: 20141104, end: 20141110
  4. OXINORM [Concomitant]
     Active Substance: OXYCODONE HYDROCHLORIDE
     Dosage: 5-15 MG P.R.N.
     Route: 048
     Dates: start: 20141103
  5. TAKEPRON [Concomitant]
     Active Substance: LANSOPRAZOLE
     Indication: PROPHYLAXIS
     Dosage: 15 MG
     Route: 048
     Dates: end: 20150220
  6. URIEF [Concomitant]
     Active Substance: SILODOSIN
     Dosage: 8 MG
     Route: 048
     Dates: end: 20150220
  7. C CYSTEN [Concomitant]
     Dosage: 3 G
     Route: 048
     Dates: end: 20150220
  8. OXINORM [Concomitant]
     Active Substance: OXYCODONE HYDROCHLORIDE
     Dosage: 180 MG
     Route: 048
     Dates: start: 20141104, end: 20150220
  9. JZOLOFT [Concomitant]
     Active Substance: SERTRALINE HYDROCHLORIDE
     Dosage: 25 MG
     Route: 048
     Dates: end: 20150220
  10. ASTOMIN [Concomitant]
     Active Substance: DIMEMORFAN
     Dosage: 60 MG
     Route: 048
     Dates: end: 20150220
  11. OXYCONTIN [Concomitant]
     Active Substance: OXYCODONE HYDROCHLORIDE
     Indication: ANALGESIC THERAPY
     Dosage: 160 MG
     Route: 048
     Dates: start: 20141104, end: 20150220
  12. LYRICA [Concomitant]
     Active Substance: PREGABALIN
     Dosage: 100 MG
     Route: 048
     Dates: start: 20141104, end: 20150220
  13. XYZAL [Concomitant]
     Active Substance: LEVOCETIRIZINE DIHYDROCHLORIDE
     Dosage: 5 MG
     Route: 048
     Dates: end: 20150220
  14. LENDORMIN [Concomitant]
     Active Substance: BROTIZOLAM
     Dosage: 0.25 MG
     Route: 048
     Dates: end: 20150220

REACTIONS (1)
  - Mesothelioma malignant [Fatal]
